FAERS Safety Report 4608908-9 (Version None)
Quarter: 2005Q1

REPORT INFORMATION
  Report Type: 
  Country: None (occurrence: None)
  Receive Date: 20050309
  Receipt Date: 20041122
  Transmission Date: 20050727
  Serious: Yes (Hospitalization, Other)
  Sender: FDA-Public Use
  Company Number: 2004236556FR

PATIENT
  Age: 81 Year
  Sex: Female

DRUGS (3)
  1. CELEBREX [Suspect]
     Indication: OSTEOARTHRITIS
     Dosage: 200 MG 1 IN 1 D, ORAL
     Route: 048
     Dates: start: 20040615, end: 20040821
  2. LEVOTHYROXINE SODIUM [Concomitant]
  3. DIACEREIN (DIACEREIN) [Concomitant]

REACTIONS (3)
  - HAEMATOMA [None]
  - LEUKOPENIA [None]
  - THROMBOCYTOPENIA [None]
